FAERS Safety Report 7251082-3 (Version None)
Quarter: 2011Q1

REPORT INFORMATION
  Report Type: 
  Country: None (occurrence: None)
  Receive Date: 20110128
  Receipt Date: 20110125
  Transmission Date: 20110831
  Serious: Yes (Disabling)
  Sender: FDA-Public Use
  Company Number: GB-MERCK-1101GBR00108

PATIENT
  Age: 70 Year
  Sex: Female
  Weight: 51 kg

DRUGS (10)
  1. METFORMIN [Concomitant]
     Route: 065
     Dates: start: 20101015, end: 20101121
  2. CLOTRIMAZOLE [Concomitant]
     Route: 065
     Dates: start: 20101210, end: 20101224
  3. CARBOMER [Concomitant]
     Route: 065
     Dates: start: 20100920, end: 20101221
  4. SIMVASTATIN [Concomitant]
     Route: 048
     Dates: start: 20100920, end: 20101221
  5. TRIMETHOPRIM [Concomitant]
     Route: 065
     Dates: start: 20101210, end: 20101217
  6. ESTRIOL [Concomitant]
     Route: 065
     Dates: start: 20101210, end: 20101211
  7. PIOGLITAZONE HYDROCHLORIDE [Concomitant]
     Route: 065
     Dates: start: 20100920, end: 20101212
  8. JANUVIA [Suspect]
     Route: 048
  9. ACETAMINOPHEN AND CODEINE [Concomitant]
     Route: 065
     Dates: start: 20101210, end: 20110109
  10. GLICLAZIDE [Concomitant]
     Route: 065
     Dates: start: 20100920, end: 20101221

REACTIONS (1)
  - TREMOR [None]
